FAERS Safety Report 8937186 (Version 1)
Quarter: 2012Q4

REPORT INFORMATION
  Report Type: Spontaneous
  Country: IT (occurrence: None)
  Receive Date: 20121121
  Receipt Date: 20121121
  Transmission Date: 20130627
  Serious: Yes (Hospitalization, Other)
  Sender: FDA-Public Use
  Company Number: 09-AUR-09571

PATIENT
  Age: 57 Year
  Sex: Male

DRUGS (2)
  1. ATENOLOL [Suspect]
     Indication: DRUG USE FOR UNKNOWN INDICATION
  2. VERAPAMIL [Suspect]
     Indication: DRUG USE FOR UNKNOWN INDICATION
     Dosage: (20 dosage firnm 1Total)
     Route: 048

REACTIONS (12)
  - Coma scale abnormal [None]
  - Pulse absent [None]
  - Cold sweat [None]
  - Cold sweat [None]
  - Hypoventilation [None]
  - Blood pressure decreased [None]
  - Sinus bradycardia [None]
  - Atrioventricular block first degree [None]
  - Pulmonary oedema [None]
  - Oxygen saturation decreased [None]
  - Device failure [None]
  - General physical health deterioration [None]
